FAERS Safety Report 8029642-1 (Version None)
Quarter: 2012Q1

REPORT INFORMATION
  Report Type: 
  Country: None (occurrence: None)
  Receive Date: 20120109
  Receipt Date: 20120104
  Transmission Date: 20120608
  Serious: Yes (Other)
  Sender: FDA-Public Use
  Company Number: US-PFIZER INC-2012002587

PATIENT
  Sex: Female

DRUGS (1)
  1. LATANOPROST [Suspect]
     Indication: INTRAOCULAR PRESSURE INCREASED
     Dosage: ONE DROP IN BOTH EYES ONCE A DAY
     Route: 047

REACTIONS (1)
  - INTRAOCULAR PRESSURE INCREASED [None]
